FAERS Safety Report 4360945-8 (Version None)
Quarter: 2004Q2

REPORT INFORMATION
  Report Type: 
  Country: None (occurrence: None)
  Receive Date: 20040517
  Receipt Date: 20000926
  Transmission Date: 20050107
  Serious: Yes (Death)
  Sender: FDA-Public Use
  Company Number: N124713

PATIENT
  Age: 77 Year
  Sex: Male

DRUGS (7)
  1. PLAVIX [Suspect]
     Indication: VASCULAR OCCLUSION
     Dosage: ORAL
     Route: 048
     Dates: start: 20000819, end: 20000819
  2. KARDEGIC (ACETYLSALICYLATE LYSINE) - UNKNOWN - [Suspect]
     Indication: VASCULAR OCCLUSION
     Dosage: 160 MG QD
     Route: 048
  3. REOPRO [Suspect]
     Indication: VASCULAR OCCLUSION
     Route: 042
     Dates: start: 20000818, end: 20000819
  4. ACTILYSE - (ALTEPLASE) - SOLUTION - 10 MG [Suspect]
     Indication: VASCULAR OCCLUSION
     Dosage: 35 MG
     Route: 042
     Dates: start: 20000818, end: 20000819
  5. LOVENOX - (HEPARIN -FRACTION, SODIUM SALT) - SOLUTION - 0.8 ML [Suspect]
     Indication: VASCULAR OCCLUSION
     Route: 058
     Dates: start: 20000816, end: 20000819
  6. BUMETANIDE [Concomitant]
  7. LYSINE ACETYLSALICYLATE [Concomitant]

REACTIONS (4)
  - DRUG INTERACTION [None]
  - HYPERTENSIVE CRISIS [None]
  - SUBDURAL HAEMATOMA [None]
  - TONGUE HAEMORRHAGE [None]
